FAERS Safety Report 24154562 (Version 1)
Quarter: 2024Q3

REPORT INFORMATION
  Report Type: Spontaneous
  Country: US (occurrence: US)
  Receive Date: 20240731
  Receipt Date: 20240731
  Transmission Date: 20241016
  Serious: Yes (Life-Threatening, Hospitalization)
  Sender: NOVO NORDISK
  Company Number: None

PATIENT

DRUGS (1)
  1. LEVEMIR [Suspect]
     Active Substance: INSULIN DETEMIR
     Indication: Product used for unknown indication
     Dosage: UNK
     Route: 058

REACTIONS (6)
  - Diabetic ketoacidosis [Unknown]
  - Loss of consciousness [Unknown]
  - Urinary incontinence [Unknown]
  - Infection [Unknown]
  - Blood glucose increased [Unknown]
  - Fear [Unknown]
